FAERS Safety Report 4371139-4 (Version None)
Quarter: 2004Q2

REPORT INFORMATION
  Report Type: 
  Country: None (occurrence: None)
  Receive Date: 20040601
  Receipt Date: 20040419
  Transmission Date: 20050107
  Serious: Yes (Hospitalization, Disabling, Other)
  Sender: FDA-Public Use
  Company Number: 061-0981-M0100569

PATIENT
  Age: 69 Year
  Sex: Female
  Weight: 50 kg

DRUGS (8)
  1. ATORVASTATIN (ATORVASTATIN) [Suspect]
     Indication: HYPERCHOLESTEROLAEMIA
     Dosage: 10 MG, ORAL
     Route: 048
     Dates: start: 20001220, end: 20010115
  2. METOPROLOL TARTRATE [Concomitant]
  3. (KARVEZIDE) (HYDROCHLOROTHIAZIDE, IRBESARTAN) [Concomitant]
  4. CISAPRIDE [Concomitant]
  5. RANITIDINE HYDROCHLORIDE [Concomitant]
  6. DILTIAZEM HYDROCHLORIDE [Concomitant]
  7. ALBUTEROL SULFATE [Concomitant]
  8. GLYCERYL TRINITRATE [Concomitant]

REACTIONS (5)
  - ANTINUCLEAR ANTIBODY POSITIVE [None]
  - DIFFICULTY IN WALKING [None]
  - MUSCLE ATROPHY [None]
  - MYOPATHY [None]
  - RHABDOMYOLYSIS [None]
